FAERS Safety Report 9831017 (Version 1)
Quarter: 2014Q1

REPORT INFORMATION
  Report Type: Report from Study
  Country: AU (occurrence: AU)
  Receive Date: 20140120
  Receipt Date: 20140120
  Transmission Date: 20141002
  Serious: Yes (Hospitalization)
  Sender: FDA-Public Use
  Company Number: PHHY2014AU005677

PATIENT
  Sex: Male

DRUGS (2)
  1. CLOZARIL [Suspect]
     Dosage: 125 MG, UNK
     Dates: start: 20020607
  2. CLOZARIL [Suspect]
     Dosage: UNK, RE-TITRATION OF DOSE

REACTIONS (1)
  - Abnormal behaviour [Unknown]
